FAERS Safety Report 10600284 (Version 1)
Quarter: 2014Q4

REPORT INFORMATION
  Report Type: Spontaneous
  Country: DE (occurrence: DE)
  Receive Date: 20141123
  Receipt Date: 20141123
  Transmission Date: 20150529
  Serious: Yes (Life-Threatening, Hospitalization, Other)
  Sender: FDA-Public Use
  Company Number: DE-MYLANLABS-2014M1011574

PATIENT

DRUGS (7)
  1. DIPYRONE [Suspect]
     Active Substance: DIPYRONE
     Route: 065
  2. METOPROLOL [Concomitant]
     Active Substance: METOPROLOL
     Route: 065
  3. LEVETIRACETAM. [Concomitant]
     Active Substance: LEVETIRACETAM
     Dosage: AND THEN DOSE WAS INCREASED
     Route: 065
  4. MIRTAZAPINE. [Suspect]
     Active Substance: MIRTAZAPINE
     Route: 065
  5. SODIUM VALPROATE [Suspect]
     Active Substance: VALPROATE SODIUM
     Route: 065
  6. MESALAZINE [Concomitant]
     Active Substance: MESALAMINE
     Route: 065
  7. IMMUNOGLOBULIN G HUMAN [Concomitant]
     Active Substance: HUMAN IMMUNOGLOBULIN G
     Dosage: 20G
     Route: 065

REACTIONS (8)
  - Central nervous system lesion [Unknown]
  - Vomiting [Unknown]
  - Clostridial infection [Unknown]
  - Pyrexia [Unknown]
  - Cardiac arrest [Unknown]
  - Encephalopathy [Unknown]
  - Porphyria acute [Recovering/Resolving]
  - Tracheal stenosis [Unknown]
